FAERS Safety Report 15073310 (Version 3)
Quarter: 2018Q3

REPORT INFORMATION
  Report Type: Report from Study
  Country: US (occurrence: US)
  Receive Date: 20180627
  Receipt Date: 20180820
  Transmission Date: 20181010
  Serious: Yes (Other)
  Sender: FDA-Public Use
  Company Number: US-GILEAD-2018-0326919

PATIENT
  Age: 77 Year
  Sex: Male

DRUGS (6)
  1. ORENITRAM [Suspect]
     Active Substance: TREPROSTINIL
     Dosage: 1.5 MG, TID
     Route: 048
  2. ORENITRAM [Suspect]
     Active Substance: TREPROSTINIL
     Dosage: 2.75 MG, TID
     Route: 065
  3. AMBRISENTAN [Suspect]
     Active Substance: AMBRISENTAN
     Indication: PRODUCT USED FOR UNKNOWN INDICATION
     Dosage: 10 MG, QD
     Route: 065
     Dates: start: 20140728
  4. REVATIO [Concomitant]
     Active Substance: SILDENAFIL CITRATE
  5. ORENITRAM [Suspect]
     Active Substance: TREPROSTINIL
     Indication: PRODUCT USED FOR UNKNOWN INDICATION
     Dosage: 2.75 MG, TID
     Route: 048
  6. ORENITRAM [Suspect]
     Active Substance: TREPROSTINIL
     Dosage: 2 MG, TID
     Route: 065

REACTIONS (26)
  - Panic reaction [Unknown]
  - Palpitations [Unknown]
  - Oedema peripheral [Not Recovered/Not Resolved]
  - Rash [Unknown]
  - Sputum discoloured [Not Recovered/Not Resolved]
  - Nausea [Unknown]
  - Rash pruritic [Not Recovered/Not Resolved]
  - Dizziness [Not Recovered/Not Resolved]
  - Loss of consciousness [Recovered/Resolved]
  - Head injury [Recovered/Resolved]
  - Headache [Not Recovered/Not Resolved]
  - Dyspnoea [Unknown]
  - Anxiety [Unknown]
  - Rales [Unknown]
  - Pallor [Unknown]
  - Candida infection [Not Recovered/Not Resolved]
  - Nausea [Recovered/Resolved]
  - Extrasystoles [Unknown]
  - Cough [Not Recovered/Not Resolved]
  - Syncope [Unknown]
  - Dyspnoea exertional [Not Recovered/Not Resolved]
  - Sinus disorder [Not Recovered/Not Resolved]
  - Nasal congestion [Not Recovered/Not Resolved]
  - Hypotension [Unknown]
  - Decreased appetite [Unknown]
  - Fatigue [Not Recovered/Not Resolved]

NARRATIVE: CASE EVENT DATE: 20180527
